FAERS Safety Report 26128537 (Version 1)
Quarter: 2025Q4

REPORT INFORMATION
  Report Type: Spontaneous
  Country: US (occurrence: US)
  Receive Date: 20251207
  Receipt Date: 20251207
  Transmission Date: 20260118
  Serious: Yes (Hospitalization, Other)
  Sender: BOEHRINGER INGELHEIM
  Company Number: US-Komodo Health-a23aa00000CNsnCAAT

PATIENT
  Age: 76 Year
  Sex: Male

DRUGS (1)
  1. STIOLTO RESPIMAT [Suspect]
     Active Substance: OLODATEROL HYDROCHLORIDE\TIOTROPIUM BROMIDE MONOHYDRATE
     Indication: Product used for unknown indication
     Dosage: 2 PUFFS DAILY

REACTIONS (6)
  - Pneumonia [Recovered/Resolved]
  - Atrial fibrillation [Recovered/Resolved]
  - Dyspnoea [Recovered/Resolved]
  - Sinusitis [Recovered/Resolved]
  - Arthritis [Unknown]
  - Fatigue [Unknown]
